FAERS Safety Report 5215291-7 (Version None)
Quarter: 2007Q1

REPORT INFORMATION
  Report Type: 
  Country: None (occurrence: None)
  Receive Date: 20070122
  Receipt Date: 20070108
  Transmission Date: 20070707
  Serious: Yes (Other)
  Sender: FDA-Public Use
  Company Number: FR-ELI_LILLY_AND_COMPANY-FR200701003899

PATIENT
  Age: 55 Year
  Sex: Female

DRUGS (4)
  1. FORTEO [Suspect]
     Indication: OSTEOPOROSIS
     Dosage: 20 UG, DAILY (1/D)
     Route: 058
     Dates: start: 20061123, end: 20061206
  2. EFFEXOR [Concomitant]
     Indication: DEPRESSION
  3. ZOLPIDEM TARTRATE [Concomitant]
     Indication: DEPRESSION
  4. NOCTRAN 10 [Concomitant]
     Indication: DEPRESSION

REACTIONS (5)
  - CRYING [None]
  - DEPRESSION [None]
  - NIGHTMARE [None]
  - POLLAKIURIA [None]
  - SUICIDAL IDEATION [None]
